FAERS Safety Report 4880799-0 (Version None)
Quarter: 2006Q1

REPORT INFORMATION
  Report Type: 
  Country: None (occurrence: None)
  Receive Date: 20060111
  Receipt Date: 20050607
  Transmission Date: 20060701
  Serious: Yes (Death)
  Sender: FDA-Public Use
  Company Number: 2005S1000120

PATIENT
  Age: 50 Year

DRUGS (37)
  1. CUBICIN [Suspect]
     Indication: BACTERAEMIA
     Dosage: 180 MG;Q24H;IV
     Route: 042
     Dates: start: 20041005, end: 20041012
  2. CUBICIN [Suspect]
     Indication: STAPHYLOCOCCAL BACTERAEMIA
     Dosage: 180 MG;Q24H;IV
     Route: 042
     Dates: start: 20041005, end: 20041012
  3. ACETAMINOPHEN [Concomitant]
  4. ACETYLCYCSTEIN [Concomitant]
  5. ALBUMIN (HUMAN) [Concomitant]
  6. ALTEPLASE [Concomitant]
  7. TOTAL PARENTERAL [Concomitant]
  8. NUTRITION [Concomitant]
  9. ASCORBIC ACID [Concomitant]
  10. BISACODYL [Concomitant]
  11. CEFEPIME [Concomitant]
  12. DIPHENHYDRAMINE [Concomitant]
  13. DOCUSATE [Concomitant]
  14. ERYTHROMYCIN [Concomitant]
  15. FLUCONAZOLE [Concomitant]
  16. HEPARIN [Concomitant]
  17. INSULIN [Concomitant]
  18. NPH INSULIN [Concomitant]
  19. POTASSIUM CHLORIDE [Concomitant]
  20. LACTULOSE [Concomitant]
  21. LINEZOLID [Concomitant]
  22. LORAZEPAM [Concomitant]
  23. MAGNESIUM SULFATE [Concomitant]
  24. MORPHINE [Concomitant]
  25. MULTI-VITAMIN [Concomitant]
  26. NOREPINEPHRINE [Concomitant]
  27. PANTOPRAZOLE [Concomitant]
  28. POTASSIUM PHOSPHATES [Concomitant]
  29. SENNA [Concomitant]
  30. SODIUM PHOSPHATES [Concomitant]
  31. SORBITOL [Concomitant]
  32. TEMAZEPAM [Concomitant]
  33. VANCOMYCIN [Concomitant]
  34. ZINC SULFATE [Concomitant]
  35. ZOSYN [Concomitant]
  36. AMPICILLIN SODIUM [Concomitant]
  37. GENTAMICIN [Concomitant]

REACTIONS (3)
  - ACTIVATED PARTIAL THROMBOPLASTIN TIME PROLONGED [None]
  - INTERNATIONAL NORMALISED RATIO INCREASED [None]
  - PULMONARY HAEMORRHAGE [None]
